FAERS Safety Report 9426083 (Version 2)
Quarter: 2013Q4

REPORT INFORMATION
  Report Type: Spontaneous
  Country: US (occurrence: US)
  Receive Date: 20130730
  Receipt Date: 20131101
  Transmission Date: 20140711
  Serious: Yes (Hospitalization)
  Sender: FDA-Public Use
  Company Number: US-BIOGENIDEC-2013BI067858

PATIENT
  Age: 39 Year
  Sex: Female

DRUGS (4)
  1. AVONEX [Suspect]
     Indication: MULTIPLE SCLEROSIS
     Route: 030
     Dates: start: 20070605
  2. AVONEX [Suspect]
     Indication: MULTIPLE SCLEROSIS
     Route: 030
  3. AVONEX [Suspect]
     Indication: MULTIPLE SCLEROSIS
     Route: 030
  4. PENICILLIN [Concomitant]
     Dates: start: 20130709, end: 201307

REACTIONS (7)
  - Vocal cord polyp [Recovered/Resolved]
  - Multiple allergies [Not Recovered/Not Resolved]
  - Sinusitis [Recovered/Resolved]
  - Aphasia [Recovered/Resolved]
  - Oropharyngeal pain [Recovered/Resolved]
  - Drug hypersensitivity [Recovered/Resolved]
  - Multiple sclerosis relapse [Recovered/Resolved]
